FAERS Safety Report 4859462-8 (Version None)
Quarter: 2005Q4

REPORT INFORMATION
  Report Type: 
  Country: None (occurrence: None)
  Receive Date: 20051219
  Receipt Date: 20050614
  Transmission Date: 20060501
  Serious: No
  Sender: FDA-Public Use
  Company Number: US-GLAXOSMITHKLINE-A0562564A

PATIENT
  Age: 64 Year
  Sex: Male

DRUGS (2)
  1. NICODERM CQ [Suspect]
     Dates: start: 20050608
  2. NICODERM CQ [Suspect]
     Dates: start: 20050525

REACTIONS (1)
  - CHEST PAIN [None]
